FAERS Safety Report 11111176 (Version 1)
Quarter: 2015Q2

REPORT INFORMATION
  Report Type: Spontaneous
  Country: AU (occurrence: AU)
  Receive Date: 20150513
  Receipt Date: 20150513
  Transmission Date: 20150821
  Serious: Yes (Other)
  Sender: FDA-Public Use
  Company Number: AU-ABBVIE-15P-008-1391119-00

PATIENT
  Sex: Male

DRUGS (2)
  1. VALPROATE SODIUM. [Suspect]
     Active Substance: VALPROATE SODIUM
     Indication: PRODUCT USED FOR UNKNOWN INDICATION
     Route: 065
     Dates: start: 2005
  2. VALPROATE SODIUM. [Suspect]
     Active Substance: VALPROATE SODIUM
     Route: 065
     Dates: start: 2013

REACTIONS (4)
  - Suicidal ideation [Unknown]
  - Hepatic function abnormal [Unknown]
  - Speech disorder [Unknown]
  - Depression [Unknown]

NARRATIVE: CASE EVENT DATE: 2013
